FAERS Safety Report 18108169 (Version 1)
Quarter: 2020Q3

REPORT INFORMATION
  Report Type: Spontaneous
  Country: DE (occurrence: DE)
  Receive Date: 20200804
  Receipt Date: 20200804
  Transmission Date: 20201103
  Serious: Yes (Hospitalization, Other)
  Sender: FDA-Public Use
  Company Number: DE-ASTRAZENECA-2020SE95681

PATIENT
  Age: 3581 Week
  Sex: Female

DRUGS (10)
  1. DOLOPHINE [Concomitant]
     Active Substance: METHADONE HYDROCHLORIDE
  2. SPIRONOLACTON [Concomitant]
     Active Substance: SPIRONOLACTONE
     Dosage: 50
  3. NOVALGIN [Concomitant]
     Dosage: 500 MG IF NECESSARY UP TO 3 TIMES DAILY
  4. SIMVASTATIN. [Concomitant]
     Active Substance: SIMVASTATIN
  5. LYNPARZA [Suspect]
     Active Substance: OLAPARIB
     Indication: OVARIAN CANCER
     Route: 048
     Dates: start: 201902
  6. FOLIC ACID. [Concomitant]
     Active Substance: FOLIC ACID
     Dosage: 5 MG EVERY 2 DAYS ONCE DAILY
  7. VITAMIN B12 [Concomitant]
     Active Substance: CYANOCOBALAMIN
     Dosage: 1000 ??G EVERY 4 WEEKS
     Route: 058
  8. LYNPARZA [Suspect]
     Active Substance: OLAPARIB
     Indication: OVARIAN CANCER
     Route: 048
     Dates: start: 201810
  9. ACETYLSALICYLIC ACID [Concomitant]
     Active Substance: ASPIRIN
     Dosage: 100 TWO TIMES DAILY
  10. OMEPRAZOL [Concomitant]
     Active Substance: OMEPRAZOLE

REACTIONS (6)
  - Hypotension [Recovering/Resolving]
  - Beta haemolytic streptococcal infection [Recovering/Resolving]
  - Pancytopenia [Recovering/Resolving]
  - Dizziness [Unknown]
  - Malaise [Unknown]
  - Cardiovascular disorder [Recovering/Resolving]

NARRATIVE: CASE EVENT DATE: 20200721
